FAERS Safety Report 10361237 (Version 1)
Quarter: 2014Q3

REPORT INFORMATION
  Report Type: Spontaneous
  Country: IT (occurrence: IT)
  Receive Date: 20140804
  Receipt Date: 20140804
  Transmission Date: 20150326
  Serious: Yes (Other)
  Sender: FDA-Public Use
  Company Number: IT-FRI-1000069533

PATIENT
  Age: 78 Year
  Sex: Female

DRUGS (7)
  1. OXYCONTIN [Concomitant]
     Active Substance: OXYCODONE HYDROCHLORIDE
  2. ALDACTONE [Suspect]
     Active Substance: SPIRONOLACTONE
     Dosage: 25 MG
     Route: 048
     Dates: start: 20130601
  3. NEBIVOLOL [Suspect]
     Active Substance: NEBIVOLOL
     Dosage: 1.25 MG
     Route: 048
     Dates: start: 20090101
  4. LOSAPREX [Suspect]
     Active Substance: LOSARTAN POTASSIUM
     Dosage: 50 MG
     Route: 048
     Dates: start: 20090101
  5. LASIX [Suspect]
     Active Substance: FUROSEMIDE
     Dosage: 25 MG
     Dates: start: 20090101, end: 20140724
  6. HALCION [Concomitant]
     Active Substance: TRIAZOLAM
  7. EUTIROX [Concomitant]
     Active Substance: LEVOTHYROXINE SODIUM

REACTIONS (1)
  - Hypotension [Recovering/Resolving]

NARRATIVE: CASE EVENT DATE: 20140724
